FAERS Safety Report 21452363 (Version 4)
Quarter: 2022Q4

REPORT INFORMATION
  Report Type: Report from Study
  Country: US (occurrence: None)
  Receive Date: 20221013
  Receipt Date: 20221201
  Transmission Date: 20230112
  Serious: Yes (Hospitalization)
  Sender: FDA-Public Use
  Company Number: US-ROCHE-3195947

PATIENT
  Age: 66 Year
  Sex: Male
  Weight: 114.9 kg

DRUGS (13)
  1. ATEZOLIZUMAB [Suspect]
     Active Substance: ATEZOLIZUMAB
     Indication: Hepatocellular carcinoma
     Dosage: THE LAST DOSE OF ATEZOLIZUMAB RECORDED WAS ON 05-JUL-2022.
     Route: 041
     Dates: start: 20220412
  2. BEVACIZUMAB [Suspect]
     Active Substance: BEVACIZUMAB
     Indication: Hepatocellular carcinoma
     Dosage: DOSE AT 15 MG/KG, FORM STRENGTH: 25 MILLIGRAM PER MILLILITRE?THE LAST DOSE OF BEVACIZUMAB RECORDED W
     Route: 042
     Dates: start: 20220412
  3. SRF-388 [Suspect]
     Active Substance: SRF-388
     Indication: Hepatocellular carcinoma
     Dosage: AT 10 MG/KG (1150 MG).?THE LAST DOSE OF OPEN LABLE SRF388 RECORDED WAS ON 05-JUL-2022.
     Route: 042
     Dates: start: 20220412
  4. LISINOPRIL [Concomitant]
     Active Substance: LISINOPRIL
     Dates: start: 20190606
  5. PROPRANOLOL HYDROCHLORIDE [Concomitant]
     Active Substance: PROPRANOLOL HYDROCHLORIDE
     Dates: start: 20110722
  6. FERROUS SULFATE [Concomitant]
     Active Substance: FERROUS SULFATE
     Dates: start: 20210818
  7. ASCORBIC ACID [Concomitant]
     Active Substance: ASCORBIC ACID
     Dates: start: 20190719
  8. NORCO [Concomitant]
     Active Substance: ACETAMINOPHEN\HYDROCODONE BITARTRATE
     Dates: start: 20190426
  9. LACTULOSE [Concomitant]
     Active Substance: LACTULOSE
     Dates: start: 20201123
  10. OMEPRAZOLE [Concomitant]
     Active Substance: OMEPRAZOLE
     Dates: start: 20190523
  11. ONDANSETRON HYDROCHLORIDE [Concomitant]
     Active Substance: ONDANSETRON HYDROCHLORIDE
     Dates: start: 20190919
  12. OXYCODONE [Concomitant]
     Active Substance: OXYCODONE
     Dates: start: 20190919
  13. ACETAMINOPHEN [Concomitant]
     Active Substance: ACETAMINOPHEN

REACTIONS (2)
  - Urinary tract infection [Recovered/Resolved]
  - Sepsis [Recovered/Resolved]

NARRATIVE: CASE EVENT DATE: 20220911
